FAERS Safety Report 5122171-4 (Version None)
Quarter: 2006Q4

REPORT INFORMATION
  Report Type: 
  Country: None (occurrence: None)
  Receive Date: 20061003
  Receipt Date: 20060922
  Transmission Date: 20070319
  Serious: Yes (Hospitalization, Other)
  Sender: FDA-Public Use
  Company Number: 2006057635

PATIENT
  Age: 51 Year
  Sex: Female
  Weight: 113.8529 kg

DRUGS (11)
  1. CELEBREX [Suspect]
     Indication: ARTHRITIS
     Dosage: 200 MG (200 MG, 1 IN 1 D)
     Dates: start: 19980101
  2. METOPROLOL TARTRATE [Concomitant]
  3. ZESTRIL [Concomitant]
  4. LASIX [Concomitant]
  5. ISOSORBIDE MN (ISOSORBIDE MONONITRATE) [Concomitant]
  6. ZOCOR [Concomitant]
  7. AVANDIA [Concomitant]
  8. ASPIRIN [Concomitant]
  9. PRILOSEC [Concomitant]
  10. METOCLOPRAMIDE [Concomitant]
  11. MAGNESIUM OXIDE (MAGNESIUM OXIDE) [Concomitant]

REACTIONS (15)
  - ACUTE RESPIRATORY FAILURE [None]
  - BLOOD GLUCOSE INCREASED [None]
  - CARDIAC DISORDER [None]
  - CARDIAC FAILURE CONGESTIVE [None]
  - CHRONIC OBSTRUCTIVE PULMONARY DISEASE [None]
  - COLLAPSE OF LUNG [None]
  - CORONARY ARTERY STENOSIS [None]
  - DIABETIC NEPHROPATHY [None]
  - DISEASE RECURRENCE [None]
  - GASTRITIS [None]
  - HAEMATEMESIS [None]
  - LIVER FUNCTION TEST ABNORMAL [None]
  - MYOCARDIAL INFARCTION [None]
  - RENAL FAILURE ACUTE [None]
  - UPPER RESPIRATORY TRACT INFECTION [None]
